FAERS Safety Report 8912674 (Version 4)
Quarter: 2013Q1

REPORT INFORMATION
  Report Type: Spontaneous
  Country: US (occurrence: US)
  Receive Date: 20121115
  Receipt Date: 20130227
  Transmission Date: 20140127
  Serious: Yes (Other)
  Sender: FDA-Public Use
  Company Number: US-009507513-1211USA000873

PATIENT
  Sex: Female
  Weight: 86.62 kg

DRUGS (1)
  1. IMPLANON [Suspect]
     Indication: CONTRACEPTION
     Dosage: 1 ROD
     Route: 059
     Dates: start: 201005

REACTIONS (3)
  - Hodgkin^s disease [Not Recovered/Not Resolved]
  - Weight increased [Not Recovered/Not Resolved]
  - Medical device complication [Unknown]
